FAERS Safety Report 4973866-4 (Version None)
Quarter: 2006Q2

REPORT INFORMATION
  Report Type: 
  Country: None (occurrence: None)
  Receive Date: 20060417
  Receipt Date: 20060406
  Transmission Date: 20061013
  Serious: Yes (Other)
  Sender: FDA-Public Use
  Company Number: US-JNJFOC-20060401566

PATIENT
  Sex: Male

DRUGS (14)
  1. REMICADE [Suspect]
     Indication: RHEUMATOID ARTHRITIS
     Route: 042
  2. SULFASALAZINE [Concomitant]
  3. ATENOLOL [Concomitant]
  4. CADUET [Concomitant]
     Dosage: 10/40 DAILY
  5. TRICOR [Concomitant]
  6. ENALAPRIL MALEATE [Concomitant]
  7. LASIX [Concomitant]
  8. NOVOLIN [Concomitant]
  9. NOVOLOG [Concomitant]
  10. ASPIRIN [Concomitant]
  11. CALTRATE [Concomitant]
  12. FOLIC ACID [Concomitant]
  13. ASCORBIC ACID [Concomitant]
  14. VITAMIN B6 [Concomitant]

REACTIONS (1)
  - KERATOACANTHOMA [None]
